FAERS Safety Report 10415470 (Version 2)
Quarter: 2014Q3

REPORT INFORMATION
  Report Type: Spontaneous
  Country: BR (occurrence: BR)
  Receive Date: 20140828
  Receipt Date: 20140828
  Transmission Date: 20150326
  Serious: Yes (Hospitalization, Other)
  Sender: FDA-Public Use
  Company Number: BR-ASTRAZENECA-2014SE40820

PATIENT
  Sex: Male
  Weight: 83 kg

DRUGS (3)
  1. LOSARTAN POTASSIUM. [Concomitant]
     Active Substance: LOSARTAN POTASSIUM
  2. ATENOLOL. [Suspect]
     Active Substance: ATENOLOL
     Route: 065
  3. BRILINTA [Suspect]
     Active Substance: TICAGRELOR
     Route: 048

REACTIONS (3)
  - Tooth disorder [Unknown]
  - Gingival bleeding [Recovered/Resolved]
  - Arterial occlusive disease [Recovered/Resolved]
